FAERS Safety Report 22314879 (Version 1)
Quarter: 2023Q2

REPORT INFORMATION
  Report Type: Spontaneous
  Country: US (occurrence: None)
  Receive Date: 20230511
  Receipt Date: 20230511
  Transmission Date: 20230721
  Serious: Yes (Other)
  Sender: FDA-Public Use
  Company Number: None

PATIENT
  Age: 54 Year
  Sex: Female

DRUGS (2)
  1. HYDROCHLOROTHIAZIDE\TELMISARTAN [Suspect]
     Active Substance: HYDROCHLOROTHIAZIDE\TELMISARTAN
     Indication: Hypertension
     Dosage: FREQUENCY : DAILY;?
     Route: 048
     Dates: start: 20230216, end: 20230505
  2. CYCLOBENZAPRINE [Concomitant]
     Dates: start: 20230305, end: 20230320

REACTIONS (6)
  - Skin discolouration [None]
  - Dehydration [None]
  - Vision blurred [None]
  - Blood pressure increased [None]
  - Migraine [None]
  - Headache [None]

NARRATIVE: CASE EVENT DATE: 20230216
